FAERS Safety Report 5873134-2 (Version None)
Quarter: 2008Q3

REPORT INFORMATION
  Report Type: 
  Country: None (occurrence: None)
  Receive Date: 20080908
  Receipt Date: 20080828
  Transmission Date: 20090109
  Serious: Yes (Hospitalization)
  Sender: FDA-Public Use
  Company Number: US-JNJFOC-20080900033

PATIENT
  Sex: Male
  Weight: 109.77 kg

DRUGS (3)
  1. FENTANYL TRANSDERMAL SYSTEM [Suspect]
     Indication: BACK PAIN
     Route: 062
  2. NORCO [Concomitant]
     Indication: BREAKTHROUGH PAIN
     Dosage: 10-325MG
     Route: 048
  3. VALIUM [Concomitant]
     Indication: SLEEP DISORDER
     Route: 048

REACTIONS (4)
  - FALL [None]
  - INTERVERTEBRAL DISC DISORDER [None]
  - WITHDRAWAL SYNDROME [None]
  - WRONG TECHNIQUE IN DRUG USAGE PROCESS [None]
